FAERS Safety Report 7485418-5 (Version None)
Quarter: 2011Q2

REPORT INFORMATION
  Report Type: 
  Country: None (occurrence: None)
  Receive Date: 20110502
  Receipt Date: 20110418
  Transmission Date: 20111010
  Serious: Yes (Other)
  Sender: FDA-Public Use
  Company Number: AECAN201100105

PATIENT
  Age: 61 Year
  Sex: Female

DRUGS (4)
  1. ANTIBIOTICS [Concomitant]
  2. PLASBUMIN [Suspect]
     Indication: COLOSTOMY
     Dosage: 25 GM; 1X; IV
     Route: 042
     Dates: start: 20110314, end: 20110315
  3. CORTICOSTEROID NOS [Concomitant]
  4. PROPOFOL [Concomitant]

REACTIONS (3)
  - PYREXIA [None]
  - HYPOTENSION [None]
  - SHOCK [None]
